FAERS Safety Report 7740245-6 (Version None)
Quarter: 2011Q3

REPORT INFORMATION
  Report Type: 
  Country: None (occurrence: None)
  Receive Date: 20110909
  Receipt Date: 20110831
  Transmission Date: 20111222
  Serious: Yes (Other)
  Sender: FDA-Public Use
  Company Number: FR-ROCHE-793274

PATIENT
  Sex: Male

DRUGS (1)
  1. MIRCERA [Suspect]
     Route: 065

REACTIONS (1)
  - HAEMOGLOBIN DECREASED [None]
